FAERS Safety Report 8094687-2 (Version None)
Quarter: 2012Q1

REPORT INFORMATION
  Report Type: 
  Country: None (occurrence: None)
  Receive Date: 20120129
  Receipt Date: 20111219
  Transmission Date: 20120608
  Serious: No
  Sender: FDA-Public Use
  Company Number: US-ABBOTT-11P-163-0885015-00

PATIENT
  Age: 52 Year
  Sex: Female

DRUGS (13)
  1. TIZANIDINE HCL [Concomitant]
     Indication: MUSCLE SPASMS
  2. OXYCODONE HCL AND ACETAMINOPHEN [Concomitant]
     Indication: BREAKTHROUGH PAIN
     Dosage: 7.5/500 MG
  3. PROMETHAZINE [Concomitant]
     Indication: NAUSEA
  4. FENTANYL [Concomitant]
     Indication: PAIN
     Dosage: PATCH
  5. CYMBALTA [Concomitant]
     Indication: FIBROMYALGIA
  6. COLESTIPOL HYDROCHLORIDE [Concomitant]
     Indication: CROHN'S DISEASE
  7. NEXIUM [Concomitant]
     Indication: GASTROOESOPHAGEAL REFLUX DISEASE
  8. TOPAMAX [Concomitant]
     Indication: FIBROMYALGIA
  9. VITAMIN D [Concomitant]
     Indication: VITAMIN SUPPLEMENTATION
  10. HUMIRA [Suspect]
     Indication: CROHN'S DISEASE
     Dates: start: 20110214
  11. ASCORBIC ACID [Concomitant]
     Indication: VITAMIN SUPPLEMENTATION
  12. VITAMIN B-12 [Concomitant]
     Indication: PRODUCT USED FOR UNKNOWN INDICATION
  13. DILTIAZEM HCL [Concomitant]
     Indication: MITRAL VALVE PROLAPSE

REACTIONS (6)
  - INJECTION SITE DISCOLOURATION [None]
  - SKIN MASS [None]
  - INCORRECT DOSE ADMINISTERED [None]
  - INJECTION SITE PAPULE [None]
  - DEVICE MALFUNCTION [None]
  - INJECTION SITE ERYTHEMA [None]
